FAERS Safety Report 19576992 (Version 1)
Quarter: 2021Q3

REPORT INFORMATION
  Report Type: Spontaneous
  Country: US (occurrence: US)
  Receive Date: 20210719
  Receipt Date: 20210719
  Transmission Date: 20211014
  Serious: No
  Sender: FDA-Public Use
  Company Number: US-GLENMARK PHARMACEUTICALS-2020GMK051157

PATIENT

DRUGS (3)
  1. KEFLEX [Concomitant]
     Active Substance: CEPHALEXIN
     Indication: PRODUCT USED FOR UNKNOWN INDICATION
     Dosage: UNK
     Route: 065
     Dates: start: 20201204, end: 20201212
  2. TRIAMCINOLONE [Concomitant]
     Active Substance: TRIAMCINOLONE
     Indication: PRODUCT USED FOR UNKNOWN INDICATION
     Dosage: UNK
     Route: 065
     Dates: start: 20201204, end: 20201212
  3. MUPIROCIN OINTMENT USP, 2% [Suspect]
     Active Substance: MUPIROCIN
     Indication: PRODUCT USED FOR UNKNOWN INDICATION
     Dosage: SMALL AMOUNT, VERY SMALL AMOUNT, PRN (APPLY 3 TIMES A DAY AS NEEDED)
     Route: 065
     Dates: start: 20201204, end: 20201209

REACTIONS (2)
  - Urticaria [Recovered/Resolved]
  - Rash [Recovered/Resolved]

NARRATIVE: CASE EVENT DATE: 20201204
